FAERS Safety Report 22121169 (Version 2)
Quarter: 2023Q2

REPORT INFORMATION
  Report Type: Spontaneous
  Country: TR (occurrence: TR)
  Receive Date: 20230321
  Receipt Date: 20230404
  Transmission Date: 20230721
  Serious: Yes (Other)
  Sender: FDA-Public Use
  Company Number: TR-PFIZER INC-202300119786

PATIENT
  Age: 62 Year
  Sex: Female

DRUGS (1)
  1. SULFASALAZINE [Suspect]
     Active Substance: SULFASALAZINE
     Indication: Colitis ulcerative
     Dosage: 4 TABLETS 2 IN THE MORNING, 2 TABLETS AT THE EVENING
     Route: 048
     Dates: start: 2006

REACTIONS (1)
  - Haemorrhage [Recovered/Resolved]
